FAERS Safety Report 9331810 (Version 2)
Quarter: 2013Q2

REPORT INFORMATION
  Report Type: Spontaneous
  Country: SK (occurrence: SK)
  Receive Date: 20130605
  Receipt Date: 20130610
  Transmission Date: 20140414
  Serious: Yes (Life-Threatening, Hospitalization, Disabling)
  Sender: FDA-Public Use
  Company Number: SK-B.I. PHARMACEUTICALS,INC./RIDGEFIELD-2013-AP-00452AP

PATIENT
  Age: 68 Year
  Sex: Male

DRUGS (6)
  1. PRADAXA [Suspect]
     Indication: ATRIAL FIBRILLATION
     Dosage: 220 MG
     Route: 048
     Dates: start: 201212, end: 20130501
  2. PRADAXA [Suspect]
     Dosage: 220 MG
     Route: 048
     Dates: start: 20130506
  3. SORTIS [Concomitant]
     Dosage: 80 MG
     Route: 048
  4. PRENESSA [Concomitant]
     Dosage: 4 MG
     Route: 048
  5. FURON [Concomitant]
     Dosage: 2 TBL - 1 TBL - 0
     Route: 048
  6. GLURENORM [Concomitant]
     Dosage: 90 MG
     Route: 048

REACTIONS (1)
  - Cerebrovascular accident [Recovered/Resolved with Sequelae]
